FAERS Safety Report 20629817 (Version 1)
Quarter: 2022Q1

REPORT INFORMATION
  Report Type: Spontaneous
  Country: JP (occurrence: JP)
  Receive Date: 20220324
  Receipt Date: 20220324
  Transmission Date: 20220423
  Serious: Yes (Death, Life-Threatening, Hospitalization, Other)
  Sender: FDA-Public Use
  Company Number: None

PATIENT
  Sex: Female
  Weight: 54.7 kg

DRUGS (18)
  1. CYCLOSPORINE [Suspect]
     Active Substance: CYCLOSPORINE
     Indication: Aplasia pure red cell
     Dosage: 200 MILLIGRAM/ PER DAY
     Route: 065
  2. PREDNISOLONE [Suspect]
     Active Substance: PREDNISOLONE
     Indication: Autoimmune disorder
     Dosage: 50 MILLIGRAM/ PER DAY
     Route: 065
  3. PREDNISOLONE [Suspect]
     Active Substance: PREDNISOLONE
     Dosage: 30 MILLIGRAM/ PER DAY
     Route: 065
  4. PREDNISOLONE [Suspect]
     Active Substance: PREDNISOLONE
     Dosage: 20 MILLIGRAM/PER DAY
     Route: 065
  5. CISPLATIN [Suspect]
     Active Substance: CISPLATIN
     Indication: Thymoma
     Dosage: UNK
     Route: 065
  6. CISPLATIN [Suspect]
     Active Substance: CISPLATIN
     Dosage: UNK
     Route: 065
  7. ADRIAMYCIN [Suspect]
     Active Substance: DOXORUBICIN HYDROCHLORIDE
     Indication: Thymoma
     Dosage: UNK
     Route: 065
  8. ADRIAMYCIN [Suspect]
     Active Substance: DOXORUBICIN HYDROCHLORIDE
     Dosage: UNK
     Route: 065
  9. VINCRISTINE [Suspect]
     Active Substance: VINCRISTINE
     Indication: Thymoma
     Dosage: UNK
     Route: 065
  10. VINCRISTINE [Suspect]
     Active Substance: VINCRISTINE
     Dosage: UNK
     Route: 065
  11. CYCLOPHOSPHAMIDE [Suspect]
     Active Substance: CYCLOPHOSPHAMIDE
     Indication: Thymoma
     Dosage: UNK
     Route: 065
  12. CYCLOPHOSPHAMIDE [Suspect]
     Active Substance: CYCLOPHOSPHAMIDE
     Dosage: UNK
     Route: 065
  13. IMMUNOGLOBULINS [Concomitant]
     Indication: Good syndrome
     Dosage: UNK,DECREASED TO APPROXIMATELY HALF 10 DAYS LATER
     Route: 042
  14. IMMUNOGLOBULINS [Concomitant]
     Dosage: 5 GRAM,ON DAY 18
     Route: 042
  15. IMMUNOGLOBULINS [Concomitant]
     Dosage: 5 GRAM,ON DAY 128
     Route: 042
  16. IMMUNOGLOBULINS [Concomitant]
     Dosage: 10 GRAM,ON DAY 130
     Route: 042
  17. IMMUNOGLOBULINS [Concomitant]
     Dosage: (4?5 G) APPROXIMATELY EVERY 2 WEEKS
     Route: 042
  18. IMMUNOGLOBULINS [Concomitant]
     Dosage: 20 GRAM, ON DAY 138
     Route: 042

REACTIONS (7)
  - Pleural effusion [Fatal]
  - Pseudomonas infection [Fatal]
  - Cytomegalovirus infection [Fatal]
  - Pneumonia [Fatal]
  - Sepsis [Fatal]
  - Therapy partial responder [Unknown]
  - Off label use [Unknown]
